FAERS Safety Report 21102964 (Version 1)
Quarter: 2022Q3

REPORT INFORMATION
  Report Type: Spontaneous
  Country: FR (occurrence: FR)
  Receive Date: 20220720
  Receipt Date: 20220720
  Transmission Date: 20221027
  Serious: Yes (Hospitalization, Other)
  Sender: FDA-Public Use
  Company Number: BG-GSKCCFEMEA-Case-01500717_AE-58498

PATIENT
  Age: 89 Year
  Sex: Male
  Weight: 59.2 kg

DRUGS (2)
  1. AMOXICILLIN\CLAVULANIC ACID [Suspect]
     Active Substance: AMOXICILLIN\CLAVULANIC ACID
     Indication: Tooth infection
     Dosage: UNK
     Route: 065
     Dates: start: 20220504
  2. RETIFANLIMAB [Suspect]
     Active Substance: RETIFANLIMAB
     Indication: Neuroendocrine carcinoma of the skin
     Dosage: 500 MILLIGRAM, (Z, EVERY 4 WEEKS)
     Route: 042
     Dates: start: 20210219

REACTIONS (2)
  - Anaphylactic shock [Not Recovered/Not Resolved]
  - Drug hypersensitivity [Recovered/Resolved]

NARRATIVE: CASE EVENT DATE: 20220504
